FAERS Safety Report 15387495 (Version 1)
Quarter: 2018Q4

REPORT INFORMATION
  Report Type: Spontaneous
  Country: US (occurrence: US)
  Receive Date: 20180914
  Receipt Date: 20180914
  Transmission Date: 20190204
  Serious: Yes (Other)
  Sender: FDA-Public Use
  Company Number: US-SA-2018SA252821

PATIENT
  Sex: Female

DRUGS (1)
  1. GOLD BOND ANTI ITCH (DIMETHICONE\MENTHOL\PRAMOXINE HYDROCHLORIDE) [Suspect]
     Active Substance: DIMETHICONE\MENTHOL\PRAMOXINE HYDROCHLORIDE
     Dosage: UNK

REACTIONS (2)
  - Neoplasm malignant [Unknown]
  - Haemorrhage urinary tract [Unknown]
